FAERS Safety Report 18459161 (Version 1)
Quarter: 2020Q4

REPORT INFORMATION
  Report Type: Spontaneous
  Country: CA (occurrence: CA)
  Receive Date: 20201103
  Receipt Date: 20201103
  Transmission Date: 20210114
  Serious: Yes (Other)
  Sender: FDA-Public Use
  Company Number: NVSC2020CA292228

PATIENT
  Age: 80 Year
  Sex: Male

DRUGS (2)
  1. VIGAMOX [Suspect]
     Active Substance: MOXIFLOXACIN HYDROCHLORIDE
     Indication: ULCERATIVE KERATITIS
     Dosage: UNK
     Route: 065
     Dates: start: 20200902
  2. CILOXAN [Suspect]
     Active Substance: CIPROFLOXACIN HYDROCHLORIDE
     Indication: PRODUCT USED FOR UNKNOWN INDICATION
     Dosage: UNK, QHS (AT BED TIME)
     Route: 065

REACTIONS (4)
  - Dyspnoea [Unknown]
  - Dizziness [Unknown]
  - Hypertension [Unknown]
  - Heart rate irregular [Unknown]

NARRATIVE: CASE EVENT DATE: 20201005
